FAERS Safety Report 12860409 (Version 3)
Quarter: 2016Q4

REPORT INFORMATION
  Report Type: Spontaneous
  Country: US (occurrence: US)
  Receive Date: 20161019
  Receipt Date: 20161228
  Transmission Date: 20170207
  Serious: Yes (Other)
  Sender: FDA-Public Use
  Company Number: US-PFIZER INC-2016486843

PATIENT
  Age: 79 Year
  Sex: Male

DRUGS (16)
  1. NORTRIPTYLINE [Suspect]
     Active Substance: NORTRIPTYLINE
     Indication: POST HERPETIC NEURALGIA
     Dosage: UNK
     Dates: start: 201508
  2. ATORVASTATIN [Concomitant]
     Active Substance: ATORVASTATIN
     Indication: BLOOD CHOLESTEROL ABNORMAL
     Dosage: 40 MG, 1X/DAY PM
  3. FLAX OIL [Concomitant]
     Indication: RHEUMATOID ARTHRITIS
     Dosage: 1000 MG, 2X/DAY AM/PM
  4. METOPROLOL TARTRATE. [Concomitant]
     Active Substance: METOPROLOL TARTRATE
     Indication: BLOOD PRESSURE ABNORMAL
     Dosage: 25 MG, 2X/DAY AM/PM
  5. VITAMIN C [Concomitant]
     Active Substance: ASCORBIC ACID
     Indication: RHEUMATOID ARTHRITIS
     Dosage: 500 MG, 2X/DAY AM/PM
  6. FOSINOPRIL/HCTZ [Concomitant]
     Indication: BLOOD PRESSURE ABNORMAL
     Dosage: FOSINOPRIL 10MG/HCTZ 12.5 ONE TIME A DAY (AM)
  7. VITAMINS WITH MINERALS [Concomitant]
     Active Substance: MINERALS\VITAMINS
     Indication: SUPPLEMENTATION THERAPY
     Dosage: UNK UNK, 1X/DAY AM
  8. VITAMIN B12 [Concomitant]
     Active Substance: CYANOCOBALAMIN
     Indication: HAEMOGLOBIN
     Dosage: 500 UG, 1X/DAY PM
  9. ALLOPURINOL. [Concomitant]
     Active Substance: ALLOPURINOL
     Indication: BLOOD URIC ACID ABNORMAL
     Dosage: 300 MG, 1X/DAY PM
  10. ANORO ELLIPTA [Concomitant]
     Active Substance: UMECLIDINIUM BROMIDE\VILANTEROL TRIFENATATE
     Indication: CHRONIC OBSTRUCTIVE PULMONARY DISEASE
     Dosage: INHALATION POWDER 1 INHALATION ONE TIME A DAY (PM)
     Route: 055
  11. GABAPENTIN. [Suspect]
     Active Substance: GABAPENTIN
     Indication: POST HERPETIC NEURALGIA
     Dosage: 800 MG, 3X/DAY
     Dates: start: 201508
  12. GLUCOSAMINE SULPHATE [Concomitant]
     Active Substance: GLUCOSAMINE
     Indication: RHEUMATOID ARTHRITIS
     Dosage: 500 MG, 2X/DAY AM/PM
  13. ASPIRIN. [Concomitant]
     Active Substance: ASPIRIN
     Indication: ANTICOAGULANT THERAPY
     Dosage: 81 MG, 1X/DAY PM
  14. MAGNESIUM OXIDE. [Concomitant]
     Active Substance: MAGNESIUM OXIDE
     Indication: BLOOD MAGNESIUM DECREASED
     Dosage: 400 MG, 1X/DAY PM
  15. FERROUS SULFATE. [Concomitant]
     Active Substance: FERROUS SULFATE
     Indication: AMNESIA
     Dosage: 325 MG, 1X/DAY PM
  16. OCUVITE [Concomitant]
     Active Substance: VITAMINS
     Indication: MACULAR DEGENERATION
     Dosage: 2 DF, 2X/DAY AM/PM

REACTIONS (5)
  - Lung disorder [Unknown]
  - Cardiomegaly [Unknown]
  - Pulmonary arterial hypertension [Unknown]
  - Neovascular age-related macular degeneration [Unknown]
  - Pulmonary mass [Unknown]

NARRATIVE: CASE EVENT DATE: 201510
